FAERS Safety Report 4613480-3 (Version None)
Quarter: 2005Q1

REPORT INFORMATION
  Report Type: 
  Country: None (occurrence: None)
  Receive Date: 20050317
  Receipt Date: 20050317
  Transmission Date: 20050727
  Serious: No
  Sender: FDA-Public Use
  Company Number: None

PATIENT
  Sex: Male
  Weight: 93 kg

DRUGS (1)
  1. GEMCITABINE [Suspect]
     Dosage: 1500 MG/M2 IV OVER 150 MIN Q WK X 3 EVERY 4 WEEKS
     Route: 042
     Dates: start: 20041029, end: 20050225

REACTIONS (7)
  - AORTIC DISSECTION [None]
  - ATRIAL FIBRILLATION [None]
  - CARDIAC FAILURE CONGESTIVE [None]
  - CHRONIC OBSTRUCTIVE AIRWAYS DISEASE EXACERBATED [None]
  - PALPITATIONS [None]
  - PULMONARY HYPERTENSION [None]
  - SPLENIC INFARCTION [None]
